FAERS Safety Report 12378495 (Version 2)
Quarter: 2016Q2

REPORT INFORMATION
  Report Type: Report from Study
  Country: US (occurrence: US)
  Receive Date: 20160517
  Receipt Date: 20160526
  Transmission Date: 20160815
  Serious: Yes (Death, Hospitalization)
  Sender: FDA-Public Use
  Company Number: US-JNJFOC-20160513794

PATIENT
  Age: 49 Year
  Sex: Male

DRUGS (3)
  1. IMBRUVICA [Suspect]
     Active Substance: IBRUTINIB
     Indication: NON-HODGKIN^S LYMPHOMA
     Route: 048
     Dates: start: 20160319, end: 20160513
  2. COREG CR [Concomitant]
     Active Substance: CARVEDILOL PHOSPHATE
  3. OXYCODONE [Concomitant]
     Active Substance: OXYCODONE

REACTIONS (13)
  - Off label use [Unknown]
  - Weight decreased [Unknown]
  - Chromaturia [Unknown]
  - Decreased appetite [Unknown]
  - Product use issue [Unknown]
  - Disease progression [Unknown]
  - Nausea [Unknown]
  - Bile duct obstruction [Unknown]
  - Hepatic failure [Unknown]
  - Hypersomnia [Unknown]
  - Death [Fatal]
  - Pyrexia [Unknown]
  - Vomiting [Unknown]

NARRATIVE: CASE EVENT DATE: 2016
